FAERS Safety Report 7146341-9 (Version None)
Quarter: 2010Q4

REPORT INFORMATION
  Report Type: 
  Country: None (occurrence: None)
  Receive Date: 20101208
  Receipt Date: 20101124
  Transmission Date: 20110411
  Serious: Yes (Other)
  Sender: FDA-Public Use
  Company Number: BE-JNJFOC-20101105368

PATIENT
  Sex: Female

DRUGS (2)
  1. STELARA [Suspect]
     Indication: ILL-DEFINED DISORDER
     Route: 058
  2. ENBREL [Suspect]
     Indication: ILL-DEFINED DISORDER

REACTIONS (1)
  - TUBERCULOSIS [None]
